FAERS Safety Report 4512843-4 (Version None)
Quarter: 2004Q4

REPORT INFORMATION
  Report Type: 
  Country: None (occurrence: None)
  Receive Date: 20041119
  Receipt Date: 20041119
  Transmission Date: 20050328
  Serious: Yes (Hospitalization)
  Sender: FDA-Public Use
  Company Number: None

PATIENT
  Age: 22 Year
  Sex: Male

DRUGS (2)
  1. METRONIDAZOLE [Suspect]
     Indication: TRICHOMONIASIS
     Dosage: UNKNOWN T.I.D. ORAL
     Route: 048
     Dates: start: 20040920, end: 20040928
  2. METRONIDAZOLE [Suspect]
     Indication: URINARY TRACT INFECTION
     Dosage: UNKNOWN T.I.D. ORAL
     Route: 048
     Dates: start: 20040920, end: 20040928

REACTIONS (8)
  - ANOREXIA [None]
  - ASTHENIA [None]
  - CHILLS [None]
  - HEADACHE [None]
  - MENINGITIS ASEPTIC [None]
  - MENINGITIS VIRAL [None]
  - MUSCULOSKELETAL STIFFNESS [None]
  - PYREXIA [None]
